FAERS Safety Report 7876572-1 (Version None)
Quarter: 2011Q4

REPORT INFORMATION
  Report Type: 
  Country: None (occurrence: None)
  Receive Date: 20111031
  Receipt Date: 20111027
  Transmission Date: 20120403
  Serious: Yes (Death, Life-Threatening, Hospitalization)
  Sender: FDA-Public Use
  Company Number: DE-ASTRAZENECA-2011SE46370

PATIENT
  Age: 69 Year
  Sex: Male
  Weight: 78 kg

DRUGS (6)
  1. BRILIQUE [Suspect]
     Dosage: 90 MG ONCE; LAST DOSE OF TICAGRELOR IN THE MORNING
     Route: 048
     Dates: start: 20110713, end: 20110713
  2. BRILIQUE [Suspect]
     Indication: ATRIAL FIBRILLATION
     Route: 048
     Dates: end: 20110712
  3. CLOPIDOGREL [Concomitant]
  4. BRILIQUE [Suspect]
     Indication: INTRACARDIAC THROMBUS
     Route: 048
     Dates: end: 20110712
  5. BRILIQUE [Suspect]
     Dosage: 90 MG ONCE; LAST DOSE OF TICAGRELOR IN THE MORNING
     Route: 048
     Dates: start: 20110713, end: 20110713
  6. ASPIRIN [Concomitant]
     Route: 048
     Dates: end: 20110713

REACTIONS (2)
  - MULTI-ORGAN FAILURE [None]
  - HAEMORRHAGE [None]
